APPROVED DRUG PRODUCT: ETODOLAC
Active Ingredient: ETODOLAC
Strength: 500MG
Dosage Form/Route: TABLET;ORAL
Application: A075074 | Product #002 | TE Code: AB
Applicant: TARO PHARMACEUTICAL INDUSTRIES LTD
Approved: Apr 25, 2000 | RLD: No | RS: Yes | Type: RX